FAERS Safety Report 21977918 (Version 1)
Quarter: 2023Q1

REPORT INFORMATION
  Report Type: Spontaneous
  Country: GB (occurrence: GB)
  Receive Date: 20230210
  Receipt Date: 20230210
  Transmission Date: 20230418
  Serious: Yes (Other)
  Sender: FDA-Public Use
  Company Number: GB-MYLANLABS-2023M1013833

PATIENT
  Age: 5 Year
  Sex: Male

DRUGS (8)
  1. DOXYCYCLINE [Suspect]
     Active Substance: DOXYCYCLINE
     Indication: Lyme disease
     Dosage: UNK
     Route: 048
  2. DOXYCYCLINE [Suspect]
     Active Substance: DOXYCYCLINE
     Indication: Infective uveitis
  3. CEFTRIAXONE [Suspect]
     Active Substance: CEFTRIAXONE
     Indication: Lyme disease
     Dosage: UNK; INTRAVENOUS (NOT SPECIFIED)
     Route: 042
  4. CEFTRIAXONE [Suspect]
     Active Substance: CEFTRIAXONE
     Indication: Infective uveitis
  5. AMOXICILLIN [Suspect]
     Active Substance: AMOXICILLIN
     Indication: Lyme disease
     Dosage: UNK
     Route: 048
  6. AMOXICILLIN [Suspect]
     Active Substance: AMOXICILLIN
     Indication: Infective uveitis
  7. MAXIDEX [Concomitant]
     Active Substance: DEXAMETHASONE
     Indication: Vitritis
     Dosage: UNK
     Route: 065
  8. ATROPINE [Concomitant]
     Active Substance: ATROPINE
     Indication: Vitritis
     Dosage: UNK
     Route: 065

REACTIONS (1)
  - Drug ineffective [Unknown]
